FAERS Safety Report 26004895 (Version 2)
Quarter: 2025Q4

REPORT INFORMATION
  Report Type: Spontaneous
  Country: US (occurrence: US)
  Receive Date: 20251106
  Receipt Date: 20251124
  Transmission Date: 20260118
  Serious: Yes (Hospitalization, Other)
  Sender: SANOFI AVENTIS
  Company Number: US-MLMSERVICE-20251024-PI685950-00232-6

PATIENT
  Age: 15 Year
  Sex: Male

DRUGS (7)
  1. PREDNISONE [Suspect]
     Active Substance: PREDNISONE
     Indication: Renal transplant
     Dosage: QD
     Dates: start: 2021
  2. THYMOGLOBULIN [Suspect]
     Active Substance: LAPINE T-LYMPHOCYTE IMMUNE GLOBULIN
     Indication: Renal transplant
     Dosage: 6 MG/KG, 4 DOSES
     Route: 042
     Dates: start: 2021
  3. NIFEDIPINE [Suspect]
     Active Substance: NIFEDIPINE
     Indication: Hypertension
     Dosage: 30.000MG
     Dates: start: 202206, end: 202403
  4. AMLODIPINE [Suspect]
     Active Substance: AMLODIPINE BESYLATE
     Indication: Hypertension
     Dosage: 2.5 MG, BID
     Dates: start: 2021, end: 202206
  5. MYCOPHENOLATE MOFETIL [Suspect]
     Active Substance: MYCOPHENOLATE MOFETIL
     Indication: Renal transplant
     Dosage: 3 TABLETS (540 MG) ORALLY EVERY MORNING
     Route: 048
     Dates: start: 2021
  6. MYCOPHENOLATE MOFETIL [Suspect]
     Active Substance: MYCOPHENOLATE MOFETIL
     Dosage: TWO TABLETS (360 MG) EVERY EVENING
     Route: 048
     Dates: start: 2021
  7. TACROLIMUS [Suspect]
     Active Substance: TACROLIMUS
     Indication: Renal transplant
     Dosage: 3.000MG Q12H
     Dates: start: 2021

REACTIONS (8)
  - Gingival hypertrophy [Recovered/Resolved]
  - Tonsillar hypertrophy [Recovered/Resolved]
  - Weight decreased [Recovered/Resolved]
  - Sleep-related breathing disorder [Recovered/Resolved]
  - Eating disorder [Recovered/Resolved]
  - Poor personal hygiene [Recovered/Resolved]
  - Oropharyngeal plaque [Recovered/Resolved]
  - Desmoid tumour [Recovered/Resolved]

NARRATIVE: CASE EVENT DATE: 20230101
